FAERS Safety Report 15884926 (Version 1)
Quarter: 2019Q1

REPORT INFORMATION
  Report Type: Report from Study
  Country: US (occurrence: US)
  Receive Date: 20190129
  Receipt Date: 20190129
  Transmission Date: 20190417
  Serious: No
  Sender: FDA-Public Use
  Company Number: PHEH2019US003650

PATIENT
  Sex: Male

DRUGS (1)
  1. ENTRESTO [Suspect]
     Active Substance: SACUBITRIL\VALSARTAN
     Indication: PRODUCT USED FOR UNKNOWN INDICATION
     Dosage: 2 DF, BID (TWO IN THE MORNING AND TWO AT NIGHT)
     Route: 048

REACTIONS (6)
  - Sleep disorder [Unknown]
  - Dizziness [Unknown]
  - Alopecia [Unknown]
  - Nausea [Unknown]
  - Insomnia [Unknown]
  - Hypotension [Unknown]
